FAERS Safety Report 5069995-X (Version None)
Quarter: 2006Q3

REPORT INFORMATION
  Report Type: 
  Country: None (occurrence: None)
  Receive Date: 20060714
  Receipt Date: 20060427
  Transmission Date: 20061208
  Serious: No
  Sender: FDA-Public Use
  Company Number: 2006SP001885

PATIENT
  Age: 31 Year
  Sex: Male

DRUGS (3)
  1. LUNESTA [Suspect]
     Dosage: 3 MG; QD; ORAL
     Route: 048
     Dates: start: 20060216, end: 20060401
  2. SUMATRIPTAN SUCCINATE [Concomitant]
  3. PROVIGIL [Concomitant]

REACTIONS (1)
  - SLEEP WALKING [None]
